FAERS Safety Report 12251773 (Version 1)
Quarter: 2016Q2

REPORT INFORMATION
  Report Type: Other
  Country: GB (occurrence: GB)
  Receive Date: 20160411
  Receipt Date: 20160411
  Transmission Date: 20160815
  Serious: Yes (Life-Threatening, Other)
  Sender: FDA-Public Use
  Company Number: GB-CIPLA LTD.-2016GB03662

PATIENT

DRUGS (4)
  1. CITALOPRAM [Suspect]
     Active Substance: CITALOPRAM HYDROBROMIDE
     Dosage: 20 MG, UNK
     Route: 065
     Dates: start: 20160313
  2. CITALOPRAM [Suspect]
     Active Substance: CITALOPRAM HYDROBROMIDE
     Dosage: 15 MG, UNK
     Route: 065
     Dates: start: 20160314
  3. CITALOPRAM [Suspect]
     Active Substance: CITALOPRAM HYDROBROMIDE
     Indication: ANXIETY
     Dosage: 20 MG/DAY
     Route: 048
     Dates: start: 20160107
  4. CITALOPRAM [Suspect]
     Active Substance: CITALOPRAM HYDROBROMIDE
     Dosage: 15 MG, UNK
     Route: 065
     Dates: start: 20160312

REACTIONS (10)
  - Akathisia [Not Recovered/Not Resolved]
  - Vomiting [Not Recovered/Not Resolved]
  - Alopecia [Not Recovered/Not Resolved]
  - Suicide attempt [Not Recovered/Not Resolved]
  - Feeling abnormal [Not Recovered/Not Resolved]
  - Suicidal ideation [Not Recovered/Not Resolved]
  - Chest pain [Not Recovered/Not Resolved]
  - Erectile dysfunction [Not Recovered/Not Resolved]
  - Insomnia [Recovered/Resolved]
  - Confusional state [Not Recovered/Not Resolved]
